FAERS Safety Report 7365052-8 (Version None)
Quarter: 2011Q1

REPORT INFORMATION
  Report Type: 
  Country: None (occurrence: None)
  Receive Date: 20110311
  Receipt Date: 20110308
  Transmission Date: 20110831
  Serious: Yes (Death, Hospitalization)
  Sender: FDA-Public Use
  Company Number: 20109818

PATIENT
  Sex: Male

DRUGS (3)
  1. LIORESAL [Suspect]
     Indication: MUSCLE SPASTICITY
     Dosage: DAILY, INTRATHECAL
     Route: 037
  2. FENTANYL [Concomitant]
  3. PRIALT [Concomitant]

REACTIONS (3)
  - DEVICE DAMAGE [None]
  - ARTHRITIS INFECTIVE [None]
  - MYOCARDIAL INFARCTION [None]
